FAERS Safety Report 9406833 (Version 4)
Quarter: 2013Q4

REPORT INFORMATION
  Report Type: Report from Study
  Country: CA (occurrence: CA)
  Receive Date: 20130718
  Receipt Date: 20131204
  Transmission Date: 20140711
  Serious: Yes (Death, Hospitalization)
  Sender: FDA-Public Use
  Company Number: PHHY2013CA075377

PATIENT
  Age: 62 Year
  Sex: Male

DRUGS (2)
  1. SANDOSTATIN [Suspect]
     Indication: COLON NEOPLASM
     Dosage: UNK UKN, UNK
     Route: 058
     Dates: start: 20130628
  2. SANDOSTATIN LAR [Suspect]
     Indication: COLON NEOPLASM
     Dosage: 20 MG, QMO
     Route: 030
     Dates: start: 20130708

REACTIONS (2)
  - Death [Fatal]
  - Obstruction [Unknown]
